FAERS Safety Report 9440677 (Version 1)
Quarter: 2013Q3

REPORT INFORMATION
  Report Type: Spontaneous
  Country: US (occurrence: US)
  Receive Date: 20130805
  Receipt Date: 20130805
  Transmission Date: 20140515
  Serious: Yes (Other)
  Sender: FDA-Public Use
  Company Number: US-SHIRE-ALL1-2013-05074

PATIENT
  Age: 10 Year
  Sex: Male
  Weight: 26.76 kg

DRUGS (2)
  1. ADDERALL XR [Suspect]
     Indication: ATTENTION DEFICIT/HYPERACTIVITY DISORDER
     Dosage: 5 MG, 1X/DAY:QD
     Route: 048
     Dates: start: 201208, end: 201306
  2. ALLERGY MEDICATION [Concomitant]
     Indication: SEASONAL ALLERGY
     Dosage: UNK, AS REQ^D
     Route: 065

REACTIONS (2)
  - Hallucination, auditory [Recovered/Resolved]
  - Paranoia [Recovered/Resolved]
